FAERS Safety Report 13807876 (Version 1)
Quarter: 2017Q3

REPORT INFORMATION
  Report Type: Spontaneous
  Country: FR (occurrence: FR)
  Receive Date: 20170728
  Receipt Date: 20170728
  Transmission Date: 20171127
  Serious: Yes (Hospitalization)
  Sender: FDA-Public Use
  Company Number: FR-ALLERGAN-1731407US

PATIENT
  Age: 35 Year
  Sex: Male

DRUGS (5)
  1. SELINCRO [Suspect]
     Active Substance: NALMEFENE HYDROCHLORIDE DIHYDRATE
     Indication: DRUG WITHDRAWAL MAINTENANCE THERAPY
     Dosage: 504 MG, SINGLE
     Route: 048
     Dates: start: 20170704, end: 20170704
  2. ALPRAZOLAM. [Suspect]
     Active Substance: ALPRAZOLAM
     Indication: DEPRESSION
     Dosage: 60 DF, SINGLE
     Route: 048
     Dates: start: 20170704, end: 20170704
  3. BACLOFEN. [Suspect]
     Active Substance: BACLOFEN
     Indication: DRUG WITHDRAWAL MAINTENANCE THERAPY
     Dosage: 600 MG, SINGLE
     Route: 048
     Dates: start: 20170704, end: 20170704
  4. PARACETAMOL [Suspect]
     Active Substance: ACETAMINOPHEN
     Indication: PAIN
     Route: 048
     Dates: start: 20170704, end: 20170704
  5. ESCITALOPRAM OXALATE - BP [Suspect]
     Active Substance: ESCITALOPRAM OXALATE
     Indication: DEPRESSION
     Dosage: 28 DF, SINGLE
     Route: 048
     Dates: start: 20170704, end: 20170704

REACTIONS (4)
  - Hypothermia [Recovering/Resolving]
  - Respiratory rate decreased [Recovering/Resolving]
  - Intentional overdose [Recovering/Resolving]
  - Coma [Recovering/Resolving]

NARRATIVE: CASE EVENT DATE: 20170704
